FAERS Safety Report 23654950 (Version 1)
Quarter: 2024Q1

REPORT INFORMATION
  Report Type: Spontaneous
  Country: US (occurrence: US)
  Receive Date: 20240320
  Receipt Date: 20240320
  Transmission Date: 20240409
  Serious: No
  Sender: FDA-Public Use
  Company Number: US-Kaleo, Inc-2024KL000003

PATIENT
  Age: 19 Year
  Sex: Male

DRUGS (1)
  1. AUVI-Q [Suspect]
     Active Substance: EPINEPHRINE
     Indication: Anaphylactic reaction
     Dates: start: 20240222, end: 20240222

REACTIONS (1)
  - Device failure [Not Recovered/Not Resolved]

NARRATIVE: CASE EVENT DATE: 20240222
